FAERS Safety Report 16344151 (Version 1)
Quarter: 2019Q2

REPORT INFORMATION
  Report Type: Spontaneous
  Country: ES (occurrence: ES)
  Receive Date: 20190522
  Receipt Date: 20190522
  Transmission Date: 20190711
  Serious: Yes (Hospitalization)
  Sender: FDA-Public Use
  Company Number: ES-PFIZER INC-2019209205

PATIENT
  Age: 83 Year
  Sex: Female

DRUGS (5)
  1. TORASEMIDE [Suspect]
     Active Substance: TORSEMIDE
     Dosage: 10 MG, DAILY
     Route: 048
     Dates: start: 20190108, end: 20190113
  2. ALDACTONE [Suspect]
     Active Substance: SPIRONOLACTONE
     Indication: AORTIC STENOSIS
     Dosage: 25 MG, ONCE DAILY IN THE MORNING (1-0-0)
     Route: 048
     Dates: start: 20180101
  3. ESCITALOPRAM [Suspect]
     Active Substance: ESCITALOPRAM OXALATE
     Dosage: 10 MG, ONCE DAILY
     Route: 048
     Dates: start: 20150427
  4. ESCITALOPRAM [Suspect]
     Active Substance: ESCITALOPRAM OXALATE
     Dosage: UNK
  5. TORASEMIDE [Suspect]
     Active Substance: TORSEMIDE
     Indication: OEDEMA PERIPHERAL
     Dosage: 5 MG, ONCE DAILY
     Route: 048
     Dates: start: 20131107, end: 20190107

REACTIONS (2)
  - Hyponatraemia [Recovering/Resolving]
  - Inappropriate antidiuretic hormone secretion [Recovering/Resolving]

NARRATIVE: CASE EVENT DATE: 20190113
